FAERS Safety Report 5709382-1 (Version None)
Quarter: 2008Q2

REPORT INFORMATION
  Report Type: 
  Country: None (occurrence: None)
  Receive Date: 20080418
  Receipt Date: 20080417
  Transmission Date: 20081010
  Serious: Yes (Other)
  Sender: FDA-Public Use
  Company Number: GB-BRISTOL-MYERS SQUIBB COMPANY-14155188

PATIENT
  Age: 46 Year
  Sex: Female

DRUGS (2)
  1. PARAPLATIN [Suspect]
     Indication: CERVIX CARCINOMA
     Dosage: 1 DOSAGEFORM = 5/175 (UNITS NOT MENTIONED). DAY3/4
  2. TAXOL [Suspect]
     Indication: CERVIX CARCINOMA
     Dosage: 1 DOSAGEFORM = 5/175 (UNITS NOT MENTIONED). DAY3/4

REACTIONS (1)
  - CEREBRAL HAEMORRHAGE [None]
